FAERS Safety Report 13825259 (Version 2)
Quarter: 2017Q3

REPORT INFORMATION
  Report Type: Spontaneous
  Country: NL (occurrence: NL)
  Receive Date: 20170802
  Receipt Date: 20170803
  Transmission Date: 20171127
  Serious: Yes (Other)
  Sender: FDA-Public Use
  Company Number: NL-TEVA-788536ROM

PATIENT
  Sex: Female

DRUGS (1)
  1. QVAR [Suspect]
     Active Substance: BECLOMETHASONE DIPROPIONATE
     Dosage: 100 MICROGRAM DAILY;
     Route: 055

REACTIONS (9)
  - Cough [Unknown]
  - Device physical property issue [Unknown]
  - Asthmatic crisis [Unknown]
  - Impaired work ability [Unknown]
  - Device malfunction [Unknown]
  - Chest discomfort [Unknown]
  - Dysphonia [Unknown]
  - Dyspnoea [Unknown]
  - Respiratory symptom [Unknown]

NARRATIVE: CASE EVENT DATE: 201706
